FAERS Safety Report 7384555-3 (Version None)
Quarter: 2011Q1

REPORT INFORMATION
  Report Type: 
  Country: None (occurrence: None)
  Receive Date: 20110330
  Receipt Date: 20110308
  Transmission Date: 20110831
  Serious: No
  Sender: FDA-Public Use
  Company Number: US-B.I. PHARMACEUTICALS,INC./RIDGEFIELD-2010-BP-14756BP

PATIENT
  Age: 71 Year
  Sex: Female

DRUGS (11)
  1. DIOVAN [Concomitant]
     Indication: HYPERTENSION
  2. GLIPIZIDE [Concomitant]
     Indication: DIABETES MELLITUS
  3. NIASPAN [Concomitant]
     Indication: BLOOD CHOLESTEROL INCREASED
  4. PRADAXA [Suspect]
     Indication: ATRIAL FIBRILLATION
     Dosage: 300 MG
     Route: 048
     Dates: start: 20101208
  5. MULTIVITAMIN [Concomitant]
     Indication: SUPPLEMENTATION THERAPY
  6. COREG [Concomitant]
     Indication: HYPERTENSION
  7. CARDURA [Concomitant]
     Indication: HYPERTENSION
  8. LEVOTHYROXINE SODIUM [Concomitant]
     Indication: HYPOTHYROIDISM
  9. ZETIA [Concomitant]
     Indication: BLOOD CHOLESTEROL INCREASED
  10. TRAZODONE [Concomitant]
     Indication: SLEEP DISORDER
  11. FENOFIBRATE [Concomitant]
     Indication: BLOOD CHOLESTEROL INCREASED

REACTIONS (4)
  - ERUCTATION [None]
  - DECREASED APPETITE [None]
  - INFLUENZA [None]
  - DYSPHAGIA [None]
